FAERS Safety Report 11193782 (Version 2)
Quarter: 2015Q3

REPORT INFORMATION
  Report Type: Spontaneous
  Country: CA (occurrence: CA)
  Receive Date: 20150616
  Receipt Date: 20150703
  Transmission Date: 20151125
  Serious: Yes (Other)
  Sender: FDA-Public Use
  Company Number: CA-GLAXOSMITHKLINE-CA2015GSK083832

PATIENT
  Age: 80 Year
  Sex: Male

DRUGS (1)
  1. VOTRIENT [Suspect]
     Active Substance: PAZOPANIB HYDROCHLORIDE
     Indication: METASTATIC RENAL CELL CARCINOMA
     Dosage: 800 MG, QD

REACTIONS (5)
  - Rash erythematous [Recovering/Resolving]
  - Haemorrhage urinary tract [Recovered/Resolved]
  - Haematuria [Recovered/Resolved]
  - Rash pruritic [Recovering/Resolving]
  - Rash generalised [Recovering/Resolving]

NARRATIVE: CASE EVENT DATE: 20150611
